FAERS Safety Report 6969390-X (Version None)
Quarter: 2010Q3

REPORT INFORMATION
  Report Type: 
  Country: None (occurrence: None)
  Receive Date: 20100902
  Receipt Date: 20100823
  Transmission Date: 20110219
  Serious: Yes (Other)
  Sender: FDA-Public Use
  Company Number: 2010MA000450

PATIENT
  Sex: Male

DRUGS (8)
  1. SULFATRIM [Suspect]
     Dosage: PO
     Route: 048
  2. ETOPOSIDE [Suspect]
  3. DEXAMETHASONE [Suspect]
  4. ONDANSETRON [Suspect]
  5. LOMUSTINE (LOMUSTINE) [Suspect]
  6. CHLORAMBUCIL (CHLORAMBUCIL) [Suspect]
  7. CON MEDS [Concomitant]
  8. PREV MEDS [Concomitant]

REACTIONS (2)
  - CARDIOMYOPATHY [None]
  - DRUG INTERACTION [None]
